FAERS Safety Report 15272117 (Version 1)
Quarter: 2018Q3

REPORT INFORMATION
  Report Type: Spontaneous
  Country: US (occurrence: US)
  Receive Date: 20180813
  Receipt Date: 20180813
  Transmission Date: 20181010
  Serious: No
  Sender: FDA-Public Use
  Company Number: US-BEH-2018093679

PATIENT
  Age: 64 Year
  Sex: Male
  Weight: 80.27 kg

DRUGS (32)
  1. DIPHENHYDRAMINE. [Concomitant]
     Active Substance: DIPHENHYDRAMINE
  2. LASIX [Concomitant]
     Active Substance: FUROSEMIDE
  3. FLUTICASONE. [Concomitant]
     Active Substance: FLUTICASONE
  4. FOLITAB                            /00024201/ [Concomitant]
  5. PENTASA [Concomitant]
     Active Substance: MESALAMINE
  6. ATORVASTATIN [Concomitant]
     Active Substance: ATORVASTATIN
  7. ZEMAIRA [Suspect]
     Active Substance: .ALPHA.1-PROTEINASE INHIBITOR HUMAN
     Dosage: 60 MG/KG, TOT
     Route: 042
  8. SYNTHROID [Concomitant]
     Active Substance: LEVOTHYROXINE SODIUM
  9. EPINEPHRINE. [Concomitant]
     Active Substance: EPINEPHRINE
  10. LMX                                /00033401/ [Concomitant]
  11. AZITHROMYCIN ANHYDROUS. [Concomitant]
     Active Substance: AZITHROMYCIN ANHYDROUS
  12. ALEVE [Concomitant]
     Active Substance: NAPROXEN SODIUM
  13. VITAMIN B12 [Concomitant]
     Active Substance: CYANOCOBALAMIN
  14. CORTISONE [Concomitant]
     Active Substance: CORTISONE\HYDROCORTISONE
  15. OXYGEN. [Concomitant]
     Active Substance: OXYGEN
  16. THEOPHYLLINE [Concomitant]
     Active Substance: THEOPHYLLINE ANHYDROUS
  17. LORAZEPAM. [Concomitant]
     Active Substance: LORAZEPAM
  18. SPRYCEL [Concomitant]
     Active Substance: DASATINIB
  19. ZEMAIRA [Suspect]
     Active Substance: .ALPHA.1-PROTEINASE INHIBITOR HUMAN
     Indication: ALPHA-1 ANTI-TRYPSIN DEFICIENCY
     Dosage: 60 MG/KG, QW
     Route: 042
     Dates: start: 20141003
  20. IPRATROPIUM BROMIDE AND ALBUTEROL SULFATE [Concomitant]
     Active Substance: ALBUTEROL SULFATE\IPRATROPIUM BROMIDE
  21. ADVAIR HFA [Concomitant]
     Active Substance: FLUTICASONE PROPIONATE\SALMETEROL XINAFOATE
  22. OMEPRAZOLE. [Concomitant]
     Active Substance: OMEPRAZOLE
  23. LEVOTHYROXINE. [Concomitant]
     Active Substance: LEVOTHYROXINE
  24. SODIUM CHLORIDE. [Concomitant]
     Active Substance: SODIUM CHLORIDE
  25. METOCLOPRAMIDE. [Concomitant]
     Active Substance: METOCLOPRAMIDE
  26. SINGULAIR [Concomitant]
     Active Substance: MONTELUKAST SODIUM
  27. LOSARTAN. [Concomitant]
     Active Substance: LOSARTAN
  28. DALIRESP [Concomitant]
     Active Substance: ROFLUMILAST
  29. METOPROLOL                         /00376903/ [Concomitant]
     Active Substance: METOPROLOL SUCCINATE
  30. ASPIRIN. [Concomitant]
     Active Substance: ASPIRIN
  31. VENTOLIN [Concomitant]
     Active Substance: ALBUTEROL SULFATE
  32. GABAPENTIN. [Concomitant]
     Active Substance: GABAPENTIN

REACTIONS (1)
  - Dyspnoea [Unknown]

NARRATIVE: CASE EVENT DATE: 20180806
